FAERS Safety Report 14957996 (Version 1)
Quarter: 2018Q2

REPORT INFORMATION
  Report Type: Spontaneous
  Country: CN (occurrence: CN)
  Receive Date: 20180531
  Receipt Date: 20180531
  Transmission Date: 20180711
  Serious: Yes (Other)
  Sender: FDA-Public Use
  Company Number: CN-PFIZER INC-2018220756

PATIENT
  Age: 65 Year
  Sex: Female

DRUGS (2)
  1. TAZOCIN [Suspect]
     Active Substance: PIPERACILLIN SODIUM\TAZOBACTAM SODIUM
     Indication: PNEUMONIA
     Dosage: 4.5 G, 3X/DAY
     Route: 041
     Dates: start: 20180317, end: 20180317
  2. REDUNING [Suspect]
     Active Substance: HERBALS
     Indication: PNEUMONIA
     Dosage: 10 ML, 1X/DAY
     Route: 041
     Dates: start: 20180317, end: 20180317

REACTIONS (3)
  - Erythema [None]
  - Drug eruption [Recovering/Resolving]
  - Condition aggravated [Recovering/Resolving]

NARRATIVE: CASE EVENT DATE: 20180317
